FAERS Safety Report 9716657 (Version 1)
Quarter: 2013Q4

REPORT INFORMATION
  Report Type: Spontaneous
  Country: US (occurrence: US)
  Receive Date: 20131127
  Receipt Date: 20131127
  Transmission Date: 20140711
  Serious: No
  Sender: FDA-Public Use
  Company Number: US-PFIZER INC-2013336002

PATIENT
  Sex: Female

DRUGS (1)
  1. VFEND [Suspect]
     Indication: MENINGITIS FUNGAL
     Dosage: 400 MG (BY TAKING TWO TABLETS OF 200MG) , 2X/DAY
     Route: 048
     Dates: start: 201308

REACTIONS (2)
  - Dizziness [Unknown]
  - Balance disorder [Unknown]
